FAERS Safety Report 16786937 (Version 9)
Quarter: 2019Q4

REPORT INFORMATION
  Report Type: Report from Study
  Country: US (occurrence: US)
  Receive Date: 20190909
  Receipt Date: 20191114
  Transmission Date: 20200122
  Serious: Yes (Hospitalization, Other)
  Sender: FDA-Public Use
  Company Number: US-GILEAD-2019-0427070

PATIENT
  Age: 42 Year
  Sex: Male
  Weight: 74.83 kg

DRUGS (9)
  1. ORENITRAM [Suspect]
     Active Substance: TREPROSTINIL
     Indication: PULMONARY ARTERIAL HYPERTENSION
     Dosage: 0.125 MG, TID
     Route: 048
     Dates: start: 20190816
  2. ORENITRAM [Suspect]
     Active Substance: TREPROSTINIL
     Dosage: 0.5 MG
     Route: 065
  3. ORENITRAM [Suspect]
     Active Substance: TREPROSTINIL
     Dosage: 1 MG
     Route: 065
  4. OXYGEN. [Concomitant]
     Active Substance: OXYGEN
  5. AMBRISENTAN [Suspect]
     Active Substance: AMBRISENTAN
     Indication: PULMONARY ARTERIAL HYPERTENSION
     Dosage: 5 MG, QD
     Route: 048
     Dates: start: 20190816
  6. AMBRISENTAN [Suspect]
     Active Substance: AMBRISENTAN
     Dosage: 10 MG, QD
     Route: 048
     Dates: start: 20190816
  7. ORENITRAM [Suspect]
     Active Substance: TREPROSTINIL
     Dosage: 0.25 MG, TID
     Route: 065
  8. ADCIRCA [Concomitant]
     Active Substance: TADALAFIL
  9. TADALAFIL. [Concomitant]
     Active Substance: TADALAFIL

REACTIONS (18)
  - Thrombosis [Unknown]
  - Syncope [Recovered/Resolved]
  - Presyncope [Unknown]
  - Oedema peripheral [Unknown]
  - Dyspepsia [Unknown]
  - Diarrhoea [Unknown]
  - Polyuria [Unknown]
  - Fibula fracture [Not Recovered/Not Resolved]
  - Thinking abnormal [Unknown]
  - Peripheral swelling [Not Recovered/Not Resolved]
  - Swelling [Unknown]
  - Joint injury [Unknown]
  - Seizure [Unknown]
  - Diarrhoea [Recovering/Resolving]
  - Headache [Unknown]
  - Ankle fracture [Unknown]
  - Hypertension [Unknown]
  - Feeling abnormal [Unknown]

NARRATIVE: CASE EVENT DATE: 201909
